FAERS Safety Report 9649502 (Version 2)
Quarter: 2013Q4

REPORT INFORMATION
  Report Type: Spontaneous
  Country: NZ (occurrence: NZ)
  Receive Date: 20131028
  Receipt Date: 20131028
  Transmission Date: 20140711
  Serious: Yes (Disabling, Other)
  Sender: FDA-Public Use
  Company Number: PHHY2013NZ085666

PATIENT
  Age: 43 Year
  Sex: Female
  Weight: 38 kg

DRUGS (4)
  1. ACLASTA [Suspect]
     Indication: OSTEOPOROSIS
     Dosage: UNK
     Route: 042
     Dates: start: 20120828
  2. ACLASTA [Suspect]
     Dosage: UNK
     Route: 042
     Dates: start: 20130827
  3. LEVOTHYROXINE SODIUM [Concomitant]
     Indication: HYPOTHYROIDISM
     Dosage: 50 UG, QD
     Route: 048
  4. CALCIUM CARBONATE [Concomitant]
     Dosage: 1.25 G, BID

REACTIONS (12)
  - Somnolence [Recovered/Resolved]
  - Influenza like illness [Recovered/Resolved]
  - Myalgia [Unknown]
  - Headache [Unknown]
  - Body temperature increased [Unknown]
  - Pain [Unknown]
  - Bone pain [Recovered/Resolved]
  - Malaise [Recovered/Resolved]
  - Pain in extremity [Recovered/Resolved]
  - Neck pain [Recovered/Resolved]
  - Feeling abnormal [Unknown]
  - Tremor [Unknown]
